FAERS Safety Report 8430976-7 (Version None)
Quarter: 2012Q2

REPORT INFORMATION
  Report Type: 
  Country: None (occurrence: None)
  Receive Date: 20120612
  Receipt Date: 20120608
  Transmission Date: 20120825
  Serious: No
  Sender: FDA-Public Use
  Company Number: US-BAYER-2012-058035

PATIENT
  Age: 71 Year
  Sex: Male
  Weight: 104 kg

DRUGS (9)
  1. ASPIRIN [Concomitant]
  2. PRILOSEC [Concomitant]
  3. VITAMIN D [Concomitant]
  4. ATORVASTATIN CALCIUM [Concomitant]
  5. MULTI-VITAMINS [Concomitant]
  6. ALEVE (CAPLET) [Suspect]
     Indication: NECK PAIN
     Dosage: UNK
     Route: 048
     Dates: start: 20120607, end: 20120608
  7. CARVEDILOL [Concomitant]
  8. LISINOPRIL [Concomitant]
  9. GLIMEPIRIDE [Concomitant]

REACTIONS (1)
  - NECK PAIN [None]
